FAERS Safety Report 6389590-X (Version None)
Quarter: 2009Q4

REPORT INFORMATION
  Report Type: 
  Country: None (occurrence: None)
  Receive Date: 20091006
  Receipt Date: 20090928
  Transmission Date: 20100525
  Serious: Yes (Other)
  Sender: FDA-Public Use
  Company Number: CA-BAYER-200934499NA

PATIENT
  Age: 57 Year
  Sex: Male
  Weight: 93 kg

DRUGS (5)
  1. SORAFENIB [Suspect]
     Indication: METASTATIC RENAL CELL CARCINOMA
     Dosage: TOTAL DAILY DOSE: 800 MG  UNIT DOSE: 200 MG
     Route: 048
     Dates: start: 20090319, end: 20090611
  2. SORAFENIB [Suspect]
     Dosage: TOTAL DAILY DOSE: 800 MG  UNIT DOSE: 200 MG
     Route: 048
     Dates: start: 20090813, end: 20090915
  3. TYLENOL ES [Concomitant]
  4. AMLODIPINE [Concomitant]
     Dosage: TOTAL DAILY DOSE: 10 MG
  5. RAMIPRIL [Concomitant]
     Dosage: TOTAL DAILY DOSE: 2.5 MG

REACTIONS (1)
  - PULMONARY EMBOLISM [None]
